FAERS Safety Report 4586578-6 (Version None)
Quarter: 2005Q1

REPORT INFORMATION
  Report Type: 
  Country: None (occurrence: None)
  Receive Date: 20050218
  Receipt Date: 20040429
  Transmission Date: 20050727
  Serious: No
  Sender: FDA-Public Use
  Company Number: US-BRISTOL-MYERS SQUIBB COMPANY-12576997

PATIENT
  Sex: Female

DRUGS (1)
  1. TAXOL [Suspect]
     Dosage: 10 CC OF 0.4 MG/ML SOLUTION EXTRAVASATED
     Route: 042

REACTIONS (1)
  - EXTRAVASATION [None]
